FAERS Safety Report 5778528-1 (Version None)
Quarter: 2008Q2

REPORT INFORMATION
  Report Type: 
  Country: None (occurrence: None)
  Receive Date: 20080619
  Receipt Date: 20080610
  Transmission Date: 20081010
  Serious: Yes (Hospitalization)
  Sender: FDA-Public Use
  Company Number: US-KINGPHARMUSA00001-K200800651

PATIENT
  Age: 84 Year
  Sex: Male

DRUGS (13)
  1. ALTACE [Suspect]
  2. LASILIX   /00032601/ [Suspect]
     Indication: DIURETIC THERAPY
     Dosage: 40 MG, UNK
  3. ALDACTONE [Suspect]
     Dosage: 25 MG, UNK
  4. KARDEGIC  /00002703/ [Suspect]
     Dosage: 75 MG, UNK
  5. LEVOTHYROXINE  /00068002/ [Concomitant]
     Dosage: 37.5 MCG, UNK
  6. OGAST [Concomitant]
     Dosage: 15 MG, UNK
  7. CORDARONE [Concomitant]
     Dosage: 5 TABLETS PER WEEK
  8. SERETIDE   /01434201/ [Concomitant]
     Dosage: 1 SPRAY, BID
  9. PREVISCAN  /00789001/ [Concomitant]
     Dosage: .5 UNK, QHS
  10. IMOVANE [Concomitant]
     Dosage: UNK, QHS
  11. DI-ANTALVIC  /00220901/ [Concomitant]
     Dosage: 2 UNK, TID, PRN
  12. MOVICOL   /01053601/ [Concomitant]
  13. POTASSIUM CHLORIDE [Concomitant]

REACTIONS (9)
  - ATRIOVENTRICULAR BLOCK COMPLETE [None]
  - BRADYCARDIA [None]
  - DEHYDRATION [None]
  - ESCHERICHIA SEPSIS [None]
  - HYPERKALAEMIA [None]
  - HYPOGLYCAEMIA [None]
  - PYELONEPHRITIS [None]
  - RENAL FAILURE ACUTE [None]
  - SEPSIS [None]
